FAERS Safety Report 7773264-4 (Version None)
Quarter: 2011Q3

REPORT INFORMATION
  Report Type: 
  Country: None (occurrence: None)
  Receive Date: 20110922
  Receipt Date: 20110909
  Transmission Date: 20111222
  Serious: Yes (Other)
  Sender: FDA-Public Use
  Company Number: GB-MYLANLABS-2011S1018897

PATIENT
  Age: 61 Year
  Sex: Male
  Weight: 155 kg

DRUGS (2)
  1. ANADIN /00112401/ [Concomitant]
     Indication: PRODUCT USED FOR UNKNOWN INDICATION
     Dates: start: 20060510
  2. BISOPROLOL FUMARATE [Suspect]
     Indication: HYPERTENSION
     Route: 048
     Dates: start: 20060510, end: 20110610

REACTIONS (1)
  - GRANULOMA [None]
